FAERS Safety Report 25329926 (Version 1)
Quarter: 2025Q2

REPORT INFORMATION
  Report Type: Spontaneous
  Country: US (occurrence: US)
  Receive Date: 20250519
  Receipt Date: 20250519
  Transmission Date: 20250717
  Serious: No
  Sender: BOEHRINGER INGELHEIM
  Company Number: US-BoehringerIngelheim-2025-BI-027311

PATIENT
  Age: 71 Year
  Sex: Female

DRUGS (3)
  1. JARDIANCE [Suspect]
     Active Substance: EMPAGLIFLOZIN
     Indication: Product used for unknown indication
  2. JARDIANCE [Suspect]
     Active Substance: EMPAGLIFLOZIN
  3. DUPIXENT [Suspect]
     Active Substance: DUPILUMAB
     Indication: Nasal polyps
     Dosage: STRENGTH: 300 MG/ 2 ML
     Dates: start: 2023

REACTIONS (3)
  - Injection site bruising [Not Recovered/Not Resolved]
  - Needle issue [Unknown]
  - Fatigue [Unknown]

NARRATIVE: CASE EVENT DATE: 20240219
